FAERS Safety Report 5299470-9 (Version None)
Quarter: 2007Q2

REPORT INFORMATION
  Report Type: 
  Country: None (occurrence: None)
  Receive Date: 20070417
  Receipt Date: 20070411
  Transmission Date: 20071010
  Serious: Yes (Death, Other)
  Sender: FDA-Public Use
  Company Number: JP-ELI_LILLY_AND_COMPANY-JP200602000553

PATIENT
  Age: 79 Year
  Sex: Male
  Weight: 53.4 kg

DRUGS (5)
  1. GEMZAR [Suspect]
     Indication: PANCREATIC CARCINOMA
     Dosage: 800 MG, OTHER
     Route: 042
     Dates: start: 20050321, end: 20050613
  2. GEMZAR [Suspect]
     Dosage: 1000 MG, OTHER
     Route: 042
     Dates: start: 20050620, end: 20050725
  3. THERAPEUTIC RADIOPHARMACEUTICALS [Concomitant]
     Indication: PANCREATIC CARCINOMA
     Dosage: 60 GY, 31 FR
     Dates: start: 20050316, end: 20050428
  4. URSO [Concomitant]
     Indication: HEPATITIS C
     Dosage: 600 MG, DAILY (1/D)
     Route: 048
  5. FLUITRAN [Concomitant]
     Indication: HYPERTENSION
     Dosage: 2 MG, DAILY (1/D)
     Route: 048

REACTIONS (3)
  - LIVER DISORDER [None]
  - MELAENA [None]
  - PLATELET COUNT DECREASED [None]
